FAERS Safety Report 25589490 (Version 1)
Quarter: 2025Q3

REPORT INFORMATION
  Report Type: Spontaneous
  Country: US (occurrence: US)
  Receive Date: 20250722
  Receipt Date: 20250722
  Transmission Date: 20251021
  Serious: No
  Sender: GLAXOSMITHKLINE
  Company Number: US-GSK-US2025078623

PATIENT
  Age: 38 Year
  Sex: Female
  Weight: 67.99 kg

DRUGS (1)
  1. NUCALA [Suspect]
     Active Substance: MEPOLIZUMAB
     Indication: Asthma
     Dosage: 100 MG/ML, Q4W

REACTIONS (2)
  - Pain in extremity [Unknown]
  - Device use error [Unknown]

NARRATIVE: CASE EVENT DATE: 20250605
